FAERS Safety Report 9239263 (Version 1)
Quarter: 2013Q2

REPORT INFORMATION
  Report Type: Spontaneous
  Country: US (occurrence: US)
  Receive Date: 20130418
  Receipt Date: 20130418
  Transmission Date: 20140414
  Serious: No
  Sender: FDA-Public Use
  Company Number: US-SANOFI-AVENTIS-2012SA060782

PATIENT
  Age: 35 Year
  Sex: Female

DRUGS (3)
  1. ENOXAPARIN SODIUM - WINTHROP [Suspect]
     Indication: DEEP VEIN THROMBOSIS
     Dosage: THERAPY START DATE: 8 DAYS AGO.
     Route: 065
     Dates: start: 20120814
  2. WARFARIN [Suspect]
     Indication: INTERNATIONAL NORMALISED RATIO
     Route: 065
     Dates: start: 20120813, end: 20120813
  3. WARFARIN [Suspect]
     Indication: INTERNATIONAL NORMALISED RATIO
     Route: 065

REACTIONS (2)
  - International normalised ratio abnormal [Unknown]
  - Pain [Not Recovered/Not Resolved]
